FAERS Safety Report 21246403 (Version 4)
Quarter: 2022Q4

REPORT INFORMATION
  Report Type: Report from Study
  Country: US (occurrence: US)
  Receive Date: 20220824
  Receipt Date: 20221119
  Transmission Date: 20230113
  Serious: No
  Sender: FDA-Public Use
  Company Number: US-NOVARTISTESTPH-NVSC2022US186406

PATIENT
  Sex: Female

DRUGS (1)
  1. COSENTYX [Suspect]
     Active Substance: SECUKINUMAB
     Indication: Psoriasis
     Dosage: 300 MG, QMO
     Route: 058
     Dates: start: 20220703

REACTIONS (8)
  - Impetigo [Not Recovered/Not Resolved]
  - Malaise [Not Recovered/Not Resolved]
  - Renal pain [Not Recovered/Not Resolved]
  - Mood altered [Unknown]
  - Dizziness [Unknown]
  - Mouth ulceration [Recovering/Resolving]
  - Urticaria [Not Recovered/Not Resolved]
  - Therapeutic product effect decreased [Not Recovered/Not Resolved]
